FAERS Safety Report 10921037 (Version 1)
Quarter: 2015Q1

REPORT INFORMATION
  Report Type: Spontaneous
  Country: US (occurrence: US)
  Receive Date: 20150317
  Receipt Date: 20150317
  Transmission Date: 20150721
  Serious: No
  Sender: FDA-Public Use
  Company Number: US-009507513-1503USA000417

PATIENT
  Sex: Female

DRUGS (2)
  1. NUVARING [Suspect]
     Active Substance: ETHINYL ESTRADIOL\ETONOGESTREL
     Dosage: UNK
     Route: 067
     Dates: end: 201502
  2. NUVARING [Suspect]
     Active Substance: ETHINYL ESTRADIOL\ETONOGESTREL
     Dosage: LEFT THE RING IN FOR THREE ADDITIONAL DAYS/INSERTED A NEW ONE AFTER ONLY 3 DAYS AFTER REMOVING
     Route: 067
     Dates: start: 201502

REACTIONS (2)
  - Incorrect drug administration duration [Unknown]
  - Device expulsion [Unknown]

NARRATIVE: CASE EVENT DATE: 201502
